FAERS Safety Report 9660587 (Version 1)
Quarter: 2013Q4

REPORT INFORMATION
  Report Type: Spontaneous
  Country: US (occurrence: US)
  Receive Date: 20131031
  Receipt Date: 20131031
  Transmission Date: 20140711
  Serious: Yes (Life-Threatening, Hospitalization)
  Sender: FDA-Public Use
  Company Number: US-BAYER-2013-131310

PATIENT
  Age: 25 Year
  Sex: Female
  Weight: 27.3 kg

DRUGS (11)
  1. YAZ [Suspect]
  2. YASMIN [Suspect]
  3. BEYAZ [Suspect]
  4. GIANVI [Suspect]
  5. OCELLA [Suspect]
  6. ZARAH [Suspect]
     Dosage: UNK
  7. TRAMADOL [Concomitant]
     Indication: PAIN
     Dosage: ONE TO TWO TABLET EVERY FOUT TO SIX HOURS AS NEEDED
     Dates: start: 20110929, end: 20111005
  8. OXYCODONE [Concomitant]
     Dosage: 5 MG, UNK
  9. ZYRTEC [Concomitant]
     Dosage: 10 MG, PRN
     Dates: start: 20111005
  10. XOPENEX [Concomitant]
     Dosage: UNK  AS NEEDED PRIOR TO EXERCISE
     Dates: start: 20111005
  11. BUDESONIDE [Concomitant]
     Dosage: 160/4.5 DAILY
     Dates: start: 20111005

REACTIONS (12)
  - Pulmonary embolism [None]
  - Deep vein thrombosis [None]
  - Pelvic venous thrombosis [None]
  - Deep vein thrombosis [None]
  - Vena cava thrombosis [None]
  - Injury [None]
  - Pain [None]
  - General physical health deterioration [None]
  - Anxiety [None]
  - Anhedonia [None]
  - Emotional distress [None]
  - Pain [None]
